FAERS Safety Report 6062813-2 (Version None)
Quarter: 2009Q1

REPORT INFORMATION
  Report Type: 
  Country: None (occurrence: None)
  Receive Date: 20090202
  Receipt Date: 20090202
  Transmission Date: 20090719
  Serious: No
  Sender: FDA-Public Use
  Company Number: None

PATIENT
  Age: 33 Year
  Sex: Male
  Weight: 72.5 kg

DRUGS (3)
  1. PAXIL [Suspect]
     Indication: FEAR
     Dosage: 1 EVRY MORNING PO
     Route: 048
  2. PAXIL [Suspect]
     Indication: PANIC ATTACK
     Dosage: 1 EVRY MORNING PO
     Route: 048
  3. RIVOTRIL [Concomitant]

REACTIONS (2)
  - FEELING ABNORMAL [None]
  - PHOTOPHOBIA [None]
